FAERS Safety Report 20870000 (Version 4)
Quarter: 2022Q3

REPORT INFORMATION
  Report Type: Report from Study
  Country: FR (occurrence: FR)
  Receive Date: 20220525
  Receipt Date: 20220913
  Transmission Date: 20221027
  Serious: Yes (Hospitalization, Other)
  Sender: FDA-Public Use
  Company Number: FR-BRISTOL-MYERS SQUIBB COMPANY-2022-040845

PATIENT
  Age: 81 Year
  Sex: Female

DRUGS (11)
  1. NIVOLUMAB [Suspect]
     Active Substance: NIVOLUMAB
     Indication: Non-small cell lung cancer
     Route: 042
     Dates: start: 20210427
  2. CEFTRIAXONE [Concomitant]
     Active Substance: CEFTRIAXONE
     Route: 042
     Dates: start: 20220311, end: 20220318
  3. LEVOFLOXACIN [Concomitant]
     Active Substance: LEVOFLOXACIN
     Dosage: 500MG/100ML
     Dates: start: 20220311, end: 20220318
  4. ACETAMINOPHEN [Concomitant]
     Active Substance: ACETAMINOPHEN
     Dates: start: 20220311, end: 20220404
  5. ESOMEPRAZOLE [Concomitant]
     Active Substance: ESOMEPRAZOLE
     Dates: start: 20220316, end: 20220319
  6. ESOMEPRAZOLE [Concomitant]
     Active Substance: ESOMEPRAZOLE
     Dates: start: 20220320, end: 20220323
  7. MIRTAZAPINE [Concomitant]
     Active Substance: MIRTAZAPINE
     Route: 048
     Dates: start: 20220312, end: 20220315
  8. FENTANYL [Concomitant]
     Active Substance: FENTANYL
     Dates: start: 20220314, end: 20220320
  9. FENTANYL [Concomitant]
     Active Substance: FENTANYL
     Dates: start: 20220323, end: 20220324
  10. FENTANYL [Concomitant]
     Active Substance: FENTANYL
     Dates: start: 20220324, end: 20220325
  11. FENTANYL [Concomitant]
     Active Substance: FENTANYL
     Dates: start: 20220325, end: 20220327

REACTIONS (16)
  - Pneumonia [Recovered/Resolved]
  - Metastases to bone [Recovered/Resolved]
  - Malignant neoplasm progression [Unknown]
  - Hypoventilation [Unknown]
  - Altered state of consciousness [Unknown]
  - Hypokalaemia [Unknown]
  - Intentional product use issue [Recovered/Resolved]
  - Asthenia [Unknown]
  - Inflammation [Unknown]
  - General physical health deterioration [Unknown]
  - Productive cough [Unknown]
  - Memory impairment [Unknown]
  - Disturbance in attention [Unknown]
  - Disorientation [Unknown]
  - Hypercalcaemia [Unknown]
  - Staphylococcus test positive [Unknown]

NARRATIVE: CASE EVENT DATE: 20210720
